FAERS Safety Report 23615747 (Version 1)
Quarter: 2024Q1

REPORT INFORMATION
  Report Type: Spontaneous
  Country: ES (occurrence: ES)
  Receive Date: 20240311
  Receipt Date: 20240311
  Transmission Date: 20240409
  Serious: Yes (Hospitalization)
  Sender: FDA-Public Use
  Company Number: ES-STADA-269099

PATIENT
  Age: 55 Year
  Sex: Female
  Weight: 90 kg

DRUGS (3)
  1. EVEROLIMUS [Suspect]
     Active Substance: EVEROLIMUS
     Indication: Chronic kidney disease
     Dosage: 1 MG, Q24H
     Route: 065
  2. PREDNISONE [Suspect]
     Active Substance: PREDNISONE
     Indication: Chronic kidney disease
     Dosage: 5 MG, Q24H
     Route: 065
  3. MYCOPHENOLIC ACID [Suspect]
     Active Substance: MYCOPHENOLIC ACID
     Indication: Chronic kidney disease
     Dosage: 360 MG, Q8H
     Route: 065

REACTIONS (3)
  - Tracheobronchitis [Unknown]
  - Pneumonia [Unknown]
  - Pseudomonas infection [Recovering/Resolving]
